FAERS Safety Report 25919306 (Version 1)
Quarter: 2025Q4

REPORT INFORMATION
  Report Type: Spontaneous
  Country: US (occurrence: None)
  Receive Date: 20251013
  Receipt Date: 20251013
  Transmission Date: 20260117
  Serious: Yes (Life-Threatening, Disabling, Other)
  Sender: FDA-CTU
  Company Number: None

PATIENT

DRUGS (4)
  1. ZOLOFT [Suspect]
     Active Substance: SERTRALINE HYDROCHLORIDE
     Dosage: OTHER QUANTITY : 1 TABLET(S);?FREQUENCY : DAILY;?
     Route: 048
     Dates: start: 20200116, end: 20210430
  2. LEXAPRO [Suspect]
     Active Substance: ESCITALOPRAM OXALATE
     Dates: start: 20210501, end: 20230422
  3. ARIPIPRAZOLE [Suspect]
     Active Substance: ARIPIPRAZOLE
  4. BUPROPION [Suspect]
     Active Substance: BUPROPION

REACTIONS (35)
  - Depression [None]
  - Anxiety [None]
  - Suicidal ideation [None]
  - Flat affect [None]
  - Akathisia [None]
  - Sexual dysfunction [None]
  - Compulsive shopping [None]
  - Insomnia [None]
  - Dizziness [None]
  - Fatigue [None]
  - Sedation [None]
  - Tremor [None]
  - Apathy [None]
  - Anhedonia [None]
  - Dissociation [None]
  - Cognitive disorder [None]
  - Restless legs syndrome [None]
  - Reduced facial expression [None]
  - Nausea [None]
  - Vomiting [None]
  - Drug intolerance [None]
  - Withdrawal syndrome [None]
  - Therapy cessation [None]
  - Brain fog [None]
  - Mood swings [None]
  - Tearfulness [None]
  - Intrusive thoughts [None]
  - Persistent genital arousal disorder [None]
  - Hyperacusis [None]
  - Photophobia [None]
  - Sensory disturbance [None]
  - Imperception [None]
  - Derealisation [None]
  - Decreased interest [None]
  - Self-injurious ideation [None]

NARRATIVE: CASE EVENT DATE: 20230422
